FAERS Safety Report 25750666 (Version 1)
Quarter: 2025Q3

REPORT INFORMATION
  Report Type: Spontaneous
  Country: EU (occurrence: EU)
  Receive Date: 20250902
  Receipt Date: 20250902
  Transmission Date: 20251021
  Serious: Yes (Hospitalization, Other)
  Sender: MSN LABORATORIES PRIVATE LIMITED
  Company Number: None

PATIENT

DRUGS (19)
  1. PREGABALIN [Suspect]
     Active Substance: PREGABALIN
     Indication: Visceral pain
     Dosage: 300 MG, 2X PER DAY
     Route: 065
  2. FENTANYL [Suspect]
     Active Substance: FENTANYL
     Indication: Visceral pain
     Dosage: 100 UG/H
     Route: 062
  3. FENTANYL [Suspect]
     Active Substance: FENTANYL
     Indication: Breakthrough pain
     Route: 045
  4. FENTANYL [Suspect]
     Active Substance: FENTANYL
     Dosage: 50 UG/H
     Route: 062
  5. BUTYLSCOPOLAMINE BROMIDE [Suspect]
     Active Substance: BUTYLSCOPOLAMINE BROMIDE
     Indication: Pain
     Route: 048
  6. BUTYLSCOPOLAMINE BROMIDE [Suspect]
     Active Substance: BUTYLSCOPOLAMINE BROMIDE
     Indication: Visceral pain
     Dosage: 10 MG, 3X PER DAY
     Route: 048
  7. BUTYLSCOPOLAMINE BROMIDE [Suspect]
     Active Substance: BUTYLSCOPOLAMINE BROMIDE
     Indication: Abdominal pain
  8. MIANSERIN [Suspect]
     Active Substance: MIANSERIN
     Indication: Insomnia
     Dosage: 30 MG AT NIGHT
     Route: 065
  9. MIANSERIN [Suspect]
     Active Substance: MIANSERIN
     Indication: Affective disorder
  10. MIANSERIN [Suspect]
     Active Substance: MIANSERIN
     Indication: Sleep disorder
  11. MIANSERIN [Suspect]
     Active Substance: MIANSERIN
     Indication: Tearfulness
  12. MIANSERIN [Suspect]
     Active Substance: MIANSERIN
     Indication: Irritability
  13. ACETAMINOPHEN [Suspect]
     Active Substance: ACETAMINOPHEN
     Indication: Visceral pain
     Dosage: 1 G, 3X PER DAY
     Route: 065
  14. SERTRALINE [Suspect]
     Active Substance: SERTRALINE HYDROCHLORIDE
     Indication: Insomnia
     Dosage: 50 MG IN THE MORNING
     Route: 065
  15. SERTRALINE [Suspect]
     Active Substance: SERTRALINE HYDROCHLORIDE
     Indication: Sleep disorder
  16. SERTRALINE [Suspect]
     Active Substance: SERTRALINE HYDROCHLORIDE
     Indication: Irritability
  17. SERTRALINE [Suspect]
     Active Substance: SERTRALINE HYDROCHLORIDE
     Indication: Tearfulness
  18. SERTRALINE [Suspect]
     Active Substance: SERTRALINE HYDROCHLORIDE
     Indication: Affective disorder
  19. VALPROIC ACID [Suspect]
     Active Substance: VALPROIC ACID
     Indication: Pain
     Route: 065

REACTIONS (7)
  - Condition aggravated [Recovering/Resolving]
  - Drug interaction [Unknown]
  - Neurotoxicity [Unknown]
  - Hypersomnia [Unknown]
  - Hyperaesthesia [Recovered/Resolved]
  - Somnolence [Recovering/Resolving]
  - Medication error [Unknown]
